FAERS Safety Report 9826653 (Version 2)
Quarter: 2014Q2

REPORT INFORMATION
  Report Type: Spontaneous
  Country: US (occurrence: US)
  Receive Date: 20140117
  Receipt Date: 20140625
  Transmission Date: 20141212
  Serious: No
  Sender: FDA-Public Use
  Company Number: US-BIOGENIDEC-2014BI002780

PATIENT
  Age: 58 Year
  Sex: Female

DRUGS (6)
  1. TECFIDERA [Suspect]
     Indication: MULTIPLE SCLEROSIS
     Route: 048
     Dates: start: 20130806, end: 20130901
  2. TECFIDERA [Suspect]
     Indication: MULTIPLE SCLEROSIS
     Dates: start: 201309
  3. METFORMIN [Concomitant]
     Indication: DIABETES MELLITUS
  4. SYNTHROID [Concomitant]
     Indication: THYROID DISORDER
  5. LOSARTIN [Concomitant]
     Indication: HYPERTENSION
  6. SIMVASTATIN [Concomitant]
     Indication: BLOOD CHOLESTEROL INCREASED

REACTIONS (10)
  - Alopecia [Not Recovered/Not Resolved]
  - Depression [Not Recovered/Not Resolved]
  - Dry skin [Not Recovered/Not Resolved]
  - Scar [Not Recovered/Not Resolved]
  - Intentional underdose [Recovered/Resolved]
  - Stress [Unknown]
  - Miliaria [Unknown]
  - Burning sensation [Unknown]
  - Hot flush [Not Recovered/Not Resolved]
  - Rash [Not Recovered/Not Resolved]
